FAERS Safety Report 25335895 (Version 1)
Quarter: 2025Q2

REPORT INFORMATION
  Report Type: Spontaneous
  Country: US (occurrence: US)
  Receive Date: 20250520
  Receipt Date: 20250520
  Transmission Date: 20250717
  Serious: Yes (Death)
  Sender: AMGEN
  Company Number: US-AMGEN-USASP2025096784

PATIENT
  Age: 46 Year
  Sex: Male

DRUGS (3)
  1. RITUXIMAB [Suspect]
     Active Substance: RITUXIMAB
     Indication: Glomerulonephritis membranous
     Route: 065
  2. FLUDARABINE [Concomitant]
     Active Substance: FLUDARABINE PHOSPHATE
  3. CYCLOPHOSPHAMIDE [Concomitant]
     Active Substance: CYCLOPHOSPHAMIDE

REACTIONS (4)
  - Chronic graft versus host disease [Fatal]
  - Acute respiratory failure [Fatal]
  - Therapy partial responder [Unknown]
  - Off label use [Unknown]
